FAERS Safety Report 5014943-1 (Version None)
Quarter: 2006Q2

REPORT INFORMATION
  Report Type: 
  Country: None (occurrence: None)
  Receive Date: 20060531
  Receipt Date: 20060427
  Transmission Date: 20061013
  Serious: Yes (Hospitalization)
  Sender: FDA-Public Use
  Company Number: DE-ROCHE-445919

PATIENT
  Age: 53 Year
  Sex: Female
  Weight: 100 kg

DRUGS (13)
  1. CELLCEPT [Suspect]
     Indication: PYODERMA GANGRENOSUM
     Route: 048
     Dates: start: 20060419, end: 20060426
  2. MARCUMAR [Interacting]
     Route: 048
     Dates: start: 20051215
  3. DECORTIN H [Concomitant]
     Indication: PYODERMA GANGRENOSUM
     Route: 048
     Dates: start: 20051215
  4. VALORON N [Concomitant]
     Indication: PAIN
     Route: 048
     Dates: start: 20060411
  5. LYRICA [Concomitant]
     Indication: PAIN
     Route: 048
     Dates: start: 20060411
  6. BELOC ZOK MITE [Concomitant]
     Indication: HYPERTENSION
     Route: 048
     Dates: start: 20051215
  7. HCT [Concomitant]
     Indication: HYPERTENSION
     Dosage: HCT 25
     Route: 048
     Dates: start: 20051215
  8. NEXIUM [Concomitant]
     Dosage: TAKEN FOR A LONGER TIME
  9. CALCIUM GLUCONATE [Concomitant]
     Dosage: TAKEN FOR A LONGER TIME
  10. VIGANTOLETTEN [Concomitant]
     Indication: OSTEOPOROSIS PROPHYLAXIS
     Dosage: VIGANTOLETTEN 1000
     Route: 048
     Dates: start: 20051215
  11. VESDIL [Concomitant]
     Indication: HYPERTENSION
     Dosage: VESDIL 5
     Route: 048
     Dates: start: 20051215
  12. NORVASC [Concomitant]
     Indication: HYPERTENSION
     Dosage: NORVASC 5
     Route: 048
     Dates: start: 20051215
  13. CA BRAUSE [Concomitant]
     Indication: OSTEOPOROSIS PROPHYLAXIS
     Dosage: CA BRAUSE 500
     Route: 048
     Dates: start: 20051215

REACTIONS (2)
  - DRUG INTERACTION [None]
  - PROTHROMBIN TIME PROLONGED [None]
